FAERS Safety Report 9882140 (Version 2)
Quarter: 2014Q1

REPORT INFORMATION
  Report Type: Report from Study
  Country: US (occurrence: US)
  Receive Date: 20140207
  Receipt Date: 20140207
  Transmission Date: 20141002
  Serious: Yes (Other)
  Sender: FDA-Public Use
  Company Number: US-BAYER-2013-155061

PATIENT
  Age: 64 Year
  Sex: Male

DRUGS (2)
  1. STIVARGA [Suspect]
     Indication: SOFT TISSUE CANCER
     Dosage: 120 MG DAILY
     Route: 048
     Dates: start: 201311
  2. STIVARGA [Suspect]
     Indication: SOFT TISSUE CANCER
     Dosage: 160 MG DAILY
     Route: 048

REACTIONS (9)
  - Fatigue [None]
  - Muscle spasms [None]
  - Abdominal pain upper [None]
  - Dry skin [None]
  - Dysphonia [None]
  - Decreased appetite [None]
  - Pain in extremity [None]
  - Pyrexia [None]
  - Muscle spasms [None]
